FAERS Safety Report 7011465-3 (Version None)
Quarter: 2010Q3

REPORT INFORMATION
  Report Type: 
  Country: None (occurrence: None)
  Receive Date: 20100923
  Receipt Date: 20090216
  Transmission Date: 20110219
  Serious: No
  Sender: FDA-Public Use
  Company Number: US-WYE-H08247909

PATIENT
  Sex: Female
  Weight: 58.11 kg

DRUGS (1)
  1. PREMARIN [Suspect]
     Indication: ATROPHY
     Route: 067
     Dates: start: 20090213, end: 20090215

REACTIONS (2)
  - NAUSEA [None]
  - UTERINE SPASM [None]
